FAERS Safety Report 22345727 (Version 1)
Quarter: 2023Q2

REPORT INFORMATION
  Report Type: Spontaneous
  Country: US (occurrence: None)
  Receive Date: 20230518
  Receipt Date: 20230518
  Transmission Date: 20230721
  Serious: No
  Sender: FDA-Public Use
  Company Number: None

PATIENT
  Age: 73 Year
  Sex: Female
  Weight: 85.73 kg

DRUGS (24)
  1. VOTRIENT [Suspect]
     Active Substance: PAZOPANIB HYDROCHLORIDE
     Indication: Renal cancer
     Dosage: FREQUENCY : DAILY;?
     Route: 048
     Dates: start: 202301
  2. methylocabalamin [Concomitant]
  3. ducusate [Concomitant]
  4. DULCOLAX NOS [Concomitant]
     Active Substance: BISACODYL OR DOCUSATE SODIUM
  5. ELIQUIS [Concomitant]
     Active Substance: APIXABAN
  6. GUAIFENESIN [Concomitant]
     Active Substance: GUAIFENESIN
  7. codeien [Concomitant]
  8. INLYTA [Concomitant]
     Active Substance: AXITINIB
  9. KEYTRUDA [Concomitant]
     Active Substance: PEMBROLIZUMAB
  10. METOPROLOL [Concomitant]
     Active Substance: METOPROLOL
  11. NITROSTAT [Concomitant]
     Active Substance: NITROGLYCERIN
  12. ONDANSETRON [Concomitant]
     Active Substance: ONDANSETRON
  13. PHENAZOPYRIDINE [Concomitant]
     Active Substance: PHENAZOPYRIDINE
  14. PREDNISONE [Concomitant]
     Active Substance: PREDNISONE
  15. ROSUVASTATIN [Concomitant]
     Active Substance: ROSUVASTATIN
  16. SCOPOLAMINE [Concomitant]
     Active Substance: SCOPOLAMINE
  17. skin nails and hair vitamin [Concomitant]
  18. SUNITINIB [Concomitant]
     Active Substance: SUNITINIB
  19. SYMBICORT [Concomitant]
     Active Substance: BUDESONIDE\FORMOTEROL FUMARATE DIHYDRATE
  20. TORSEMIDE [Concomitant]
     Active Substance: TORSEMIDE
  21. TYLENOL [Concomitant]
     Active Substance: ACETAMINOPHEN
  22. VITAMIN D [Concomitant]
     Active Substance: VITAMIN D NOS
  23. XOPENEX [Concomitant]
  24. hfa [Concomitant]

REACTIONS (3)
  - Pain [None]
  - Nodule [None]
  - Skin exfoliation [None]
